FAERS Safety Report 4269123-4 (Version None)
Quarter: 2004Q1

REPORT INFORMATION
  Report Type: 
  Country: None (occurrence: None)
  Receive Date: 20040108
  Receipt Date: 20031230
  Transmission Date: 20041129
  Serious: Yes (Hospitalization, Other)
  Sender: FDA-Public Use
  Company Number: HQWYE956530DEC03

PATIENT
  Age: 30 Month
  Sex: Male

DRUGS (6)
  1. CHILDREN'S ADVIL [Suspect]
     Indication: DIARRHOEA
     Route: 048
  2. CHILDREN'S ADVIL [Suspect]
     Indication: PYREXIA
     Route: 048
  3. ACETAMINOPHEN [Suspect]
     Indication: PYREXIA
     Route: 048
  4. LACTEOL (LACTOBACILLIN ACIDOPHILUS) [Suspect]
     Indication: DIARRHOEA
     Route: 048
  5. TIORFAN (ACETORPHAN) [Suspect]
     Indication: DIARRHOEA
     Route: 048
  6. DEBRIDAT (TRIMEBUTINE MALEATE) [Concomitant]

REACTIONS (1)
  - ERYTHEMA NODOSUM [None]
